FAERS Safety Report 9062282 (Version 1)
Quarter: 2013Q1

REPORT INFORMATION
  Report Type: Spontaneous
  Country: US (occurrence: US)
  Receive Date: 20130128
  Receipt Date: 20130128
  Transmission Date: 20140127
  Serious: Yes (Hospitalization)
  Sender: FDA-Public Use
  Company Number: US-ASTELLAS-2013US000784

PATIENT
  Age: 56 Year
  Sex: Female

DRUGS (1)
  1. PROGRAF [Suspect]
     Indication: HEART TRANSPLANT
     Dosage: 5 MG, UID/QD (3MG AM, 2MG PM)
     Route: 048
     Dates: start: 200701

REACTIONS (1)
  - Hospitalisation [Unknown]
